FAERS Safety Report 13527864 (Version 2)
Quarter: 2017Q2

REPORT INFORMATION
  Report Type: Spontaneous
  Country: US (occurrence: US)
  Receive Date: 20170509
  Receipt Date: 20170609
  Transmission Date: 20170830
  Serious: Yes (Hospitalization)
  Sender: FDA-Public Use
  Company Number: US-PFIZER INC-2017198517

PATIENT
  Age: 63 Year
  Sex: Male
  Weight: 93 kg

DRUGS (8)
  1. TRILEPTAL [Concomitant]
     Active Substance: OXCARBAZEPINE
     Indication: SEIZURE
     Dosage: 600 MG, HALF ONE IN MORNING HALF AT LUNCH AND HALF IN AFTERNOON AND A WHOLE AT BED TIME
     Dates: start: 2009
  2. FLEXERIL [Concomitant]
     Active Substance: CYCLOBENZAPRINE HYDROCHLORIDE
     Indication: MUSCLE SPASMS
     Dosage: 10 MG, AS NEEDED AT NIGHT
     Dates: start: 2014
  3. XANAX [Suspect]
     Active Substance: ALPRAZOLAM
     Indication: PANIC ATTACK
     Dosage: 2 MG  EVERY MORNING A WHOLE ONE (IF HAVING PANIC ATTACK), HALF ONE AT LUNCH, AND ONE WHOLE AT BEDTIM
     Dates: start: 2008, end: 20170430
  4. LISINOPRIL. [Concomitant]
     Active Substance: LISINOPRIL
     Indication: BLOOD PRESSURE ABNORMAL
     Dosage: 20 MG, 2X/DAY
     Dates: start: 2014
  5. XANAX [Suspect]
     Active Substance: ALPRAZOLAM
     Dosage: 2 1/2 X A DAY
     Dates: start: 20170501
  6. LIPITOR [Concomitant]
     Active Substance: ATORVASTATIN CALCIUM
     Indication: BLOOD CHOLESTEROL ABNORMAL
     Dosage: 10 MG, 1X/DAY
     Dates: start: 2014
  7. NORCO [Concomitant]
     Active Substance: ACETAMINOPHEN\HYDROCODONE BITARTRATE
     Indication: VOMITING
     Dosage: UNK (3-325)
     Dates: end: 20170511
  8. NORCO [Concomitant]
     Active Substance: ACETAMINOPHEN\HYDROCODONE BITARTRATE
     Indication: HEADACHE
     Dosage: UNK, AS NEEDED (5MG-325, 6 TO 7 TIMES A MONTH AS NEEDED)
     Dates: start: 2013

REACTIONS (3)
  - Product physical issue [Not Recovered/Not Resolved]
  - Product taste abnormal [Not Recovered/Not Resolved]
  - Drug ineffective [Not Recovered/Not Resolved]

NARRATIVE: CASE EVENT DATE: 20170501
